FAERS Safety Report 6242119-9 (Version None)
Quarter: 2009Q2

REPORT INFORMATION
  Report Type: 
  Country: None (occurrence: None)
  Receive Date: 20090624
  Receipt Date: 20080314
  Transmission Date: 20091009
  Serious: Yes (Other)
  Sender: FDA-Public Use
  Company Number: US-ASTRAZENECA-2008UW01164

PATIENT
  Age: 662 Month
  Sex: Female

DRUGS (14)
  1. SEROQUEL [Suspect]
     Indication: ANXIETY
     Dosage: 25 MG TO 50 MG
     Route: 048
     Dates: start: 20000101, end: 20040101
  2. SEROQUEL [Suspect]
     Indication: DEPRESSION
     Dosage: 25 MG TO 50 MG
     Route: 048
     Dates: start: 20000101, end: 20040101
  3. SEROQUEL [Suspect]
     Indication: SCHIZOPHRENIA
     Dosage: 25 MG TO 50 MG
     Route: 048
     Dates: start: 20000101, end: 20040101
  4. SEROQUEL [Suspect]
     Dosage: 25MG - 800MG
     Route: 048
     Dates: start: 20030304, end: 20040415
  5. SEROQUEL [Suspect]
     Dosage: 25MG - 800MG
     Route: 048
     Dates: start: 20030304, end: 20040415
  6. SEROQUEL [Suspect]
     Dosage: 25MG - 800MG
     Route: 048
     Dates: start: 20030304, end: 20040415
  7. PROTONIX [Concomitant]
     Indication: GASTROOESOPHAGEAL REFLUX DISEASE
     Route: 048
  8. PAXIL CR [Concomitant]
     Dosage: 12.5MG-25MG
  9. ABILIFY [Concomitant]
     Dosage: 10 MG - 40 MG
     Dates: end: 20040330
  10. RISPERDAL [Concomitant]
     Indication: HALLUCINATION, AUDITORY
     Dosage: 1 MG - 6 MG
     Route: 048
     Dates: end: 20040415
  11. DESYREL [Concomitant]
     Dosage: 25MG - 200MG
  12. REMERON [Concomitant]
     Dosage: 15 MG - 45 MG
  13. ZOLOFT [Concomitant]
     Dosage: 50MG - 200MG
  14. LEXAPRO [Concomitant]
     Dosage: 10 MG - 40 MG

REACTIONS (2)
  - DIABETES MELLITUS [None]
  - DIABETIC RETINOPATHY [None]
